FAERS Safety Report 18491285 (Version 1)
Quarter: 2020Q4

REPORT INFORMATION
  Report Type: Spontaneous
  Country: FR (occurrence: FR)
  Receive Date: 20201111
  Receipt Date: 20201111
  Transmission Date: 20210114
  Serious: Yes (Hospitalization, Other)
  Sender: FDA-Public Use
  Company Number: FR-AMGEN-FRASP2020181213

PATIENT
  Age: 44 Year
  Sex: Female
  Weight: 82 kg

DRUGS (4)
  1. CIMZIA [Suspect]
     Active Substance: CERTOLIZUMAB PEGOL
     Indication: AXIAL SPONDYLOARTHRITIS
     Dosage: 200 MILLIGRAM, Q2WK
     Route: 058
     Dates: start: 201707, end: 201710
  2. AMGEVITA [Suspect]
     Active Substance: ADALIMUMAB
     Indication: AXIAL SPONDYLOARTHRITIS
     Dosage: 40 MILLIGRAM, QWK
     Route: 058
     Dates: start: 201812, end: 201905
  3. CERAZETTE [CEFALORIDINE] [Suspect]
     Active Substance: CEPHALORIDINE
     Indication: ORAL CONTRACEPTION
     Dosage: 1 DOSAGE FORM, QD
     Route: 048
  4. HUMIRA [Suspect]
     Active Substance: ADALIMUMAB
     Indication: AXIAL SPONDYLOARTHRITIS
     Dosage: 40 MILLIGRAM, QWK, PRE- FILLED PEN INJECTABLE SOLUTION
     Route: 058

REACTIONS (1)
  - Invasive ductal breast carcinoma [Recovering/Resolving]

NARRATIVE: CASE EVENT DATE: 202005
